FAERS Safety Report 14037602 (Version 1)
Quarter: 2017Q4

REPORT INFORMATION
  Report Type: Spontaneous
  Country: US (occurrence: US)
  Receive Date: 20171003
  Receipt Date: 20171003
  Transmission Date: 20180321
  Serious: Yes (Death)
  Sender: FDA-Public Use
  Company Number: None

PATIENT
  Age: 39 Year
  Sex: Male
  Weight: 77.85 kg

DRUGS (1)
  1. KRATOM (MITRAGYNA) [Suspect]
     Active Substance: MITRAGYNINE\HERBALS
     Route: 048

REACTIONS (2)
  - Toxicity to various agents [None]
  - Sudden death [None]

NARRATIVE: CASE EVENT DATE: 20170508
